FAERS Safety Report 22657563 (Version 1)
Quarter: 2023Q2

REPORT INFORMATION
  Report Type: Spontaneous
  Country: US (occurrence: US)
  Receive Date: 20230630
  Receipt Date: 20230630
  Transmission Date: 20230721
  Serious: No
  Sender: FDA-Public Use
  Company Number: US-Accord-308642

PATIENT

DRUGS (1)
  1. CLONAZEPAM [Suspect]
     Active Substance: CLONAZEPAM
     Indication: Product used for unknown indication
     Dosage: 0.5MG UP TO 4XD AND 0.5MG 3XD

REACTIONS (4)
  - Anxiety [Unknown]
  - Headache [Recovered/Resolved]
  - Drug ineffective [Unknown]
  - Withdrawal syndrome [Unknown]
